FAERS Safety Report 12968600 (Version 1)
Quarter: 2016Q4

REPORT INFORMATION
  Report Type: Spontaneous
  Country: US (occurrence: US)
  Receive Date: 20161121
  Receipt Date: 20161121
  Transmission Date: 20170207
  Serious: No
  Sender: FDA-Public Use
  Company Number: None

PATIENT
  Age: 69 Year
  Sex: Female
  Weight: 68.1 kg

DRUGS (1)
  1. PROLIA [Suspect]
     Active Substance: DENOSUMAB
     Indication: OSTEOPOROSIS
     Dosage: 1 Q 6 MONTHS SUB Q
     Route: 058
     Dates: start: 20161027

REACTIONS (1)
  - Alopecia [None]

NARRATIVE: CASE EVENT DATE: 20161108
